FAERS Safety Report 5001630-9 (Version None)
Quarter: 2006Q2

REPORT INFORMATION
  Report Type: 
  Country: None (occurrence: None)
  Receive Date: 20060515
  Receipt Date: 20060504
  Transmission Date: 20061013
  Serious: Yes (Other)
  Sender: FDA-Public Use
  Company Number: PHBS2006ES06723

PATIENT
  Age: 80 Year
  Sex: Female

DRUGS (5)
  1. ZOMETA [Suspect]
     Indication: MULTIPLE MYELOMA
     Dosage: 4 MG, QMO
     Route: 042
     Dates: start: 20031001, end: 20060101
  2. CYCLOPHOSPHAMIDE W/VINCRISTINE/PREDNISONE [Concomitant]
     Dosage: 2 CYCLES
     Route: 065
  3. VINCRISTINE [Concomitant]
     Dosage: 2 CYCLES
     Route: 065
  4. DEXAMETHASONE [Concomitant]
     Dosage: 2 CYCLES
     Route: 065
  5. ADRIAMYCINE + VINCRISTINE [Concomitant]
     Dosage: 2 CYCLES
     Route: 065

REACTIONS (3)
  - IMPAIRED HEALING [None]
  - OSTEONECROSIS [None]
  - TOOTH EXTRACTION [None]
